FAERS Safety Report 10398342 (Version 1)
Quarter: 2014Q3

REPORT INFORMATION
  Report Type: Spontaneous
  Country: US (occurrence: None)
  Receive Date: 20140819
  Receipt Date: 20140819
  Transmission Date: 20150326
  Serious: Yes (Other)
  Sender: FDA-Public Use
  Company Number: AUR-APL-2014-08849

PATIENT
  Age: 75 Year
  Sex: Female

DRUGS (2)
  1. TISSUE PLASMINOGEN ACTIVATOR [Suspect]
     Active Substance: ALTEPLASE
     Indication: ISCHAEMIC STROKE
     Dosage: 0.1 MG/KG OVER 1 MINUTE
  2. LISINOPRIL. [Suspect]
     Active Substance: LISINOPRIL
     Indication: HYPERTENSION

REACTIONS (3)
  - Drug interaction [None]
  - Angioedema [None]
  - Epistaxis [None]
